FAERS Safety Report 7450529-7 (Version None)
Quarter: 2011Q2

REPORT INFORMATION
  Report Type: 
  Country: None (occurrence: None)
  Receive Date: 20110502
  Receipt Date: 20110427
  Transmission Date: 20111010
  Serious: Yes (Death, Hospitalization)
  Sender: FDA-Public Use
  Company Number: PHHY2010JP42161

PATIENT
  Sex: Male

DRUGS (7)
  1. GLAKAY [Concomitant]
     Indication: MYELODYSPLASTIC SYNDROME
     Dosage: 45 MG, UNK
     Route: 048
     Dates: start: 20080625, end: 20080714
  2. ONEALFA [Concomitant]
     Indication: MYELODYSPLASTIC SYNDROME
     Dosage: 1.5?G
     Route: 048
     Dates: start: 20080625, end: 20080714
  3. EXJADE [Suspect]
     Dosage: 500 MG
     Route: 048
     Dates: start: 20080625, end: 20080714
  4. URSO 250 [Concomitant]
     Dosage: 600 MG, UNK
     Route: 048
     Dates: start: 20080625, end: 20080714
  5. VFEND [Concomitant]
     Dosage: 400 MG, UNK
     Route: 048
     Dates: start: 20080625, end: 20080714
  6. PARIET [Concomitant]
     Dosage: 10 MG, UNK
     Route: 048
     Dates: start: 20080625, end: 20080714
  7. BLOOD TRANSFUSION, AUXILIARY PRODUCTS [Concomitant]
     Dosage: UNK
     Dates: start: 20080625

REACTIONS (6)
  - DISEASE PROGRESSION [None]
  - HAEMOGLOBIN DECREASED [None]
  - AGRANULOCYTOSIS [None]
  - NEUTROPHIL COUNT DECREASED [None]
  - BLAST CELL COUNT INCREASED [None]
  - WHITE BLOOD CELL COUNT INCREASED [None]
